FAERS Safety Report 21787650 (Version 1)
Quarter: 2022Q4

REPORT INFORMATION
  Report Type: Spontaneous
  Country: CA (occurrence: CA)
  Receive Date: 20221228
  Receipt Date: 20221228
  Transmission Date: 20230112
  Serious: Yes (Hospitalization, Other)
  Sender: FDA-Public Use
  Company Number: CA-TEVA-2022-CA-2839948

PATIENT
  Age: 77 Year
  Sex: Female

DRUGS (157)
  1. ACEBUTOLOL HYDROCHLORIDE [Suspect]
     Active Substance: ACEBUTOLOL HYDROCHLORIDE
     Indication: Hypertension
     Dosage: 100 MILLIGRAM DAILY;
     Route: 065
  2. ACEBUTOLOL HYDROCHLORIDE [Suspect]
     Active Substance: ACEBUTOLOL HYDROCHLORIDE
     Indication: Coronary artery disease
     Dosage: 100 MILLIGRAM DAILY;
     Route: 065
  3. ACEBUTOLOL HYDROCHLORIDE [Suspect]
     Active Substance: ACEBUTOLOL HYDROCHLORIDE
     Indication: Chest pain
     Dosage: 100 MILLIGRAM DAILY;
     Route: 065
  4. ACEBUTOLOL HYDROCHLORIDE [Suspect]
     Active Substance: ACEBUTOLOL HYDROCHLORIDE
     Indication: Angina pectoris
     Dosage: 100 MILLIGRAM DAILY;
     Route: 065
  5. ACEBUTOLOL HYDROCHLORIDE [Suspect]
     Active Substance: ACEBUTOLOL HYDROCHLORIDE
     Dosage: 200 MILLIGRAM DAILY;
     Route: 065
  6. ACEBUTOLOL HYDROCHLORIDE [Suspect]
     Active Substance: ACEBUTOLOL HYDROCHLORIDE
     Dosage: 200 MILLIGRAM DAILY;
     Route: 065
  7. ACEBUTOLOL HYDROCHLORIDE [Suspect]
     Active Substance: ACEBUTOLOL HYDROCHLORIDE
     Dosage: 200 MILLIGRAM DAILY;
     Route: 065
  8. ACEBUTOLOL HYDROCHLORIDE [Suspect]
     Active Substance: ACEBUTOLOL HYDROCHLORIDE
     Dosage: 200 MILLIGRAM DAILY;
     Route: 065
  9. ACEBUTOLOL HYDROCHLORIDE [Suspect]
     Active Substance: ACEBUTOLOL HYDROCHLORIDE
     Dosage: 400 MILLIGRAM DAILY;
     Route: 065
  10. ACEBUTOLOL HYDROCHLORIDE [Suspect]
     Active Substance: ACEBUTOLOL HYDROCHLORIDE
     Dosage: 400 MILLIGRAM DAILY;
     Route: 065
  11. ACEBUTOLOL HYDROCHLORIDE [Suspect]
     Active Substance: ACEBUTOLOL HYDROCHLORIDE
     Dosage: 400 MILLIGRAM DAILY;
     Route: 065
  12. ACEBUTOLOL HYDROCHLORIDE [Suspect]
     Active Substance: ACEBUTOLOL HYDROCHLORIDE
     Dosage: 400 MILLIGRAM DAILY;
     Route: 065
  13. ACETAMINOPHEN [Suspect]
     Active Substance: ACETAMINOPHEN
     Indication: Pain
     Dosage: 600 MILLIGRAM DAILY;
     Route: 065
  14. AMITRIPTYLINE [Suspect]
     Active Substance: AMITRIPTYLINE
     Indication: Angina pectoris
     Dosage: 50 MILLIGRAM DAILY;
     Route: 065
  15. AMITRIPTYLINE [Suspect]
     Active Substance: AMITRIPTYLINE
     Indication: Insomnia
     Dosage: 50 MILLIGRAM DAILY;
     Route: 065
  16. AMITRIPTYLINE [Suspect]
     Active Substance: AMITRIPTYLINE
     Dosage: 75 MILLIGRAM DAILY;
     Route: 065
  17. AMITRIPTYLINE [Suspect]
     Active Substance: AMITRIPTYLINE
     Dosage: 75 MILLIGRAM DAILY;
     Route: 065
  18. AMITRIPTYLINE [Suspect]
     Active Substance: AMITRIPTYLINE
     Dosage: 75 MILLIGRAM DAILY;
     Route: 065
  19. AMITRIPTYLINE [Suspect]
     Active Substance: AMITRIPTYLINE
     Dosage: 75 MILLIGRAM DAILY;
     Route: 065
  20. AMLODIPINE [Suspect]
     Active Substance: AMLODIPINE BESYLATE
     Indication: Hypertension
     Route: 065
  21. AMLODIPINE [Suspect]
     Active Substance: AMLODIPINE BESYLATE
     Indication: Coronary artery disease
     Dosage: 5 MILLIGRAM DAILY;
     Route: 065
  22. AMLODIPINE [Suspect]
     Active Substance: AMLODIPINE BESYLATE
     Indication: Chest pain
     Dosage: 5 MILLIGRAM DAILY;
     Route: 065
  23. AMLODIPINE [Suspect]
     Active Substance: AMLODIPINE BESYLATE
     Indication: Angina pectoris
     Dosage: 5 MILLIGRAM DAILY;
     Route: 065
  24. AMLODIPINE [Suspect]
     Active Substance: AMLODIPINE BESYLATE
     Indication: Product used for unknown indication
     Dosage: 5 MILLIGRAM DAILY;
     Route: 065
  25. CARBAMAZEPINE [Suspect]
     Active Substance: CARBAMAZEPINE
     Indication: Seizure prophylaxis
     Dosage: 200 MILLIGRAM DAILY;
     Route: 065
  26. CARBAMAZEPINE [Suspect]
     Active Substance: CARBAMAZEPINE
     Indication: Seizure
     Dosage: 200 MILLIGRAM DAILY;
     Route: 065
  27. CARBAMAZEPINE [Suspect]
     Active Substance: CARBAMAZEPINE
     Indication: Fibromyalgia
     Dosage: 200 MILLIGRAM DAILY;
     Route: 065
  28. CARBAMAZEPINE [Suspect]
     Active Substance: CARBAMAZEPINE
     Dosage: 200 MILLIGRAM DAILY;
     Route: 065
  29. CARBAMAZEPINE [Suspect]
     Active Substance: CARBAMAZEPINE
     Dosage: 200 MILLIGRAM DAILY;
     Route: 065
  30. CARBAMAZEPINE [Suspect]
     Active Substance: CARBAMAZEPINE
     Dosage: 200 MILLIGRAM DAILY;
     Route: 065
  31. CARBAMAZEPINE [Suspect]
     Active Substance: CARBAMAZEPINE
     Dosage: 100 MILLIGRAM DAILY;
     Route: 065
  32. CARBAMAZEPINE [Suspect]
     Active Substance: CARBAMAZEPINE
     Dosage: 100 MILLIGRAM DAILY;
     Route: 065
  33. CARBAMAZEPINE [Suspect]
     Active Substance: CARBAMAZEPINE
     Dosage: 100 MILLIGRAM DAILY;
     Route: 065
  34. DILTIAZEM HYDROCHLORIDE [Suspect]
     Active Substance: DILTIAZEM HYDROCHLORIDE
     Indication: Hypertension
     Dosage: 360 MILLIGRAM DAILY;
     Route: 065
  35. DILTIAZEM HYDROCHLORIDE [Suspect]
     Active Substance: DILTIAZEM HYDROCHLORIDE
     Indication: Coronary artery disease
     Dosage: 360 MILLIGRAM DAILY;
     Route: 065
  36. DILTIAZEM HYDROCHLORIDE [Suspect]
     Active Substance: DILTIAZEM HYDROCHLORIDE
     Indication: Chest pain
     Dosage: 360 MILLIGRAM DAILY;
     Route: 065
  37. DILTIAZEM HYDROCHLORIDE [Suspect]
     Active Substance: DILTIAZEM HYDROCHLORIDE
     Indication: Angina pectoris
     Dosage: 360 MILLIGRAM DAILY;
     Route: 065
  38. FUROSEMIDE [Suspect]
     Active Substance: FUROSEMIDE
     Indication: Coronary artery disease
     Dosage: 40 MILLIGRAM DAILY;
     Route: 065
  39. FUROSEMIDE [Suspect]
     Active Substance: FUROSEMIDE
     Indication: Chest pain
     Dosage: 40 MILLIGRAM DAILY;
     Route: 065
  40. FUROSEMIDE [Suspect]
     Active Substance: FUROSEMIDE
     Indication: Angina pectoris
     Dosage: 40 MILLIGRAM DAILY;
     Route: 065
  41. FUROSEMIDE [Suspect]
     Active Substance: FUROSEMIDE
     Indication: Oedema
     Dosage: 40 MILLIGRAM DAILY;
     Route: 065
  42. LACTULOSE [Suspect]
     Active Substance: LACTULOSE
     Indication: Thyroid disorder
     Dosage: 15 MILLIGRAM DAILY;
     Route: 048
  43. LACTULOSE [Suspect]
     Active Substance: LACTULOSE
     Indication: Radioactive iodine therapy
     Dosage: 15 MILLIGRAM DAILY;
     Route: 048
  44. LACTULOSE [Suspect]
     Active Substance: LACTULOSE
     Indication: Constipation
     Dosage: 15 MILLIGRAM DAILY;
     Route: 048
  45. LEVOFLOXACIN HEMIHYDRATE [Suspect]
     Active Substance: LEVOFLOXACIN
     Indication: Urinary tract infection
     Dosage: 250 MILLIGRAM DAILY;
     Route: 065
  46. MAGNESIUM HYDROXIDE [Suspect]
     Active Substance: MAGNESIUM HYDROXIDE
     Indication: Constipation
     Route: 065
  47. CYCLOBENZAPRINE HYDROCHLORIDE [Suspect]
     Active Substance: CYCLOBENZAPRINE HYDROCHLORIDE
     Indication: Pain
     Dosage: 5 MILLIGRAM DAILY;
     Route: 065
  48. CYCLOBENZAPRINE HYDROCHLORIDE [Suspect]
     Active Substance: CYCLOBENZAPRINE HYDROCHLORIDE
     Indication: Fibromyalgia
     Dosage: 5 MILLIGRAM DAILY;
     Route: 065
  49. CYCLOBENZAPRINE HYDROCHLORIDE [Suspect]
     Active Substance: CYCLOBENZAPRINE HYDROCHLORIDE
     Dosage: 10 MILLIGRAM DAILY;
     Route: 065
  50. CYCLOBENZAPRINE HYDROCHLORIDE [Suspect]
     Active Substance: CYCLOBENZAPRINE HYDROCHLORIDE
     Dosage: 10 MILLIGRAM DAILY;
     Route: 065
  51. CYCLOBENZAPRINE HYDROCHLORIDE [Suspect]
     Active Substance: CYCLOBENZAPRINE HYDROCHLORIDE
     Dosage: 15 MILLIGRAM DAILY;
     Route: 065
  52. CYCLOBENZAPRINE HYDROCHLORIDE [Suspect]
     Active Substance: CYCLOBENZAPRINE HYDROCHLORIDE
     Dosage: 15 MILLIGRAM DAILY;
     Route: 065
  53. OMEPRAZOLE MAGNESIUM [Suspect]
     Active Substance: OMEPRAZOLE MAGNESIUM
     Indication: Hypertension
     Dosage: 20 MILLIGRAM DAILY;
     Route: 048
  54. OMEPRAZOLE MAGNESIUM [Suspect]
     Active Substance: OMEPRAZOLE MAGNESIUM
     Indication: Coronary artery disease
     Dosage: 20 MILLIGRAM DAILY;
     Route: 048
  55. OMEPRAZOLE MAGNESIUM [Suspect]
     Active Substance: OMEPRAZOLE MAGNESIUM
     Indication: Chest pain
     Dosage: 20 MILLIGRAM DAILY;
     Route: 048
  56. OMEPRAZOLE MAGNESIUM [Suspect]
     Active Substance: OMEPRAZOLE MAGNESIUM
     Indication: Angina pectoris
     Dosage: 20 MILLIGRAM DAILY;
     Route: 048
  57. OMEPRAZOLE MAGNESIUM [Suspect]
     Active Substance: OMEPRAZOLE MAGNESIUM
     Indication: Duodenal ulcer
     Dosage: 20 MILLIGRAM DAILY;
     Route: 048
  58. ROSUVASTATIN CALCIUM [Suspect]
     Active Substance: ROSUVASTATIN CALCIUM
     Indication: Cerebrovascular accident
     Dosage: 20 MILLIGRAM DAILY;
     Route: 065
  59. ROSUVASTATIN CALCIUM [Suspect]
     Active Substance: ROSUVASTATIN CALCIUM
     Dosage: 40 MILLIGRAM DAILY;
     Route: 048
  60. ALBUTEROL [Suspect]
     Active Substance: ALBUTEROL
     Indication: Product used for unknown indication
     Route: 065
  61. ALBUTEROL [Suspect]
     Active Substance: ALBUTEROL
     Route: 065
  62. AGGRENOX [Suspect]
     Active Substance: ASPIRIN\DIPYRIDAMOLE
     Indication: Cerebrovascular accident
     Route: 065
  63. AMBROXOL\GUAIFENESIN\LEVALBUTEROL [Suspect]
     Active Substance: AMBROXOL\GUAIFENESIN\LEVALBUTEROL
     Indication: Product used for unknown indication
     Route: 065
  64. AMINOPHYLLINE [Suspect]
     Active Substance: AMINOPHYLLINE
     Indication: Coronary artery disease
     Dosage: 6 MILLIGRAM DAILY;
     Route: 061
  65. ATROPINE [Suspect]
     Active Substance: ATROPINE
     Indication: Chest pain
     Dosage: 6 MILLIGRAM DAILY;
     Route: 061
  66. NITROGLYCERIN [Suspect]
     Active Substance: NITROGLYCERIN
     Indication: Angina pectoris
     Dosage: 6 MILLIGRAM DAILY;
     Route: 061
  67. DIAZEPAM [Suspect]
     Active Substance: DIAZEPAM
     Indication: Insomnia
     Route: 065
  68. AMITRIPTYLINE HYDROCHLORIDE\PERPHENAZINE [Suspect]
     Active Substance: AMITRIPTYLINE HYDROCHLORIDE\PERPHENAZINE
     Indication: Insomnia
     Dosage: 50 MILLIGRAM DAILY;
     Route: 065
  69. AMITRIPTYLINE HYDROCHLORIDE\PERPHENAZINE [Suspect]
     Active Substance: AMITRIPTYLINE HYDROCHLORIDE\PERPHENAZINE
     Dosage: 75 MILLIGRAM DAILY;
     Route: 065
  70. AMLODIPINE BESYLATE\TELMISARTAN [Suspect]
     Active Substance: AMLODIPINE BESYLATE\TELMISARTAN
     Indication: Product used for unknown indication
     Route: 065
  71. CARBAMAZEPINE [Suspect]
     Active Substance: CARBAMAZEPINE
     Indication: Prophylaxis
     Route: 065
  72. DILTIAZEM HYDROCHLORIDE [Suspect]
     Active Substance: DILTIAZEM HYDROCHLORIDE
     Indication: Hypertension
     Dosage: 500 MILLIGRAM DAILY;
     Route: 065
  73. DILTIAZEM HYDROCHLORIDE [Suspect]
     Active Substance: DILTIAZEM HYDROCHLORIDE
     Indication: Coronary artery disease
     Dosage: 500 MILLIGRAM DAILY;
     Route: 065
  74. DILTIAZEM HYDROCHLORIDE [Suspect]
     Active Substance: DILTIAZEM HYDROCHLORIDE
     Indication: Chest pain
     Dosage: 500 MILLIGRAM DAILY;
     Route: 065
  75. DILTIAZEM HYDROCHLORIDE [Suspect]
     Active Substance: DILTIAZEM HYDROCHLORIDE
     Indication: Angina pectoris
     Dosage: 500 MILLIGRAM DAILY;
     Route: 065
  76. DILTIAZEM HYDROCHLORIDE [Suspect]
     Active Substance: DILTIAZEM HYDROCHLORIDE
     Dosage: 360 MILLIGRAM DAILY;
     Route: 065
  77. DILTIAZEM HYDROCHLORIDE [Suspect]
     Active Substance: DILTIAZEM HYDROCHLORIDE
     Dosage: 360 MILLIGRAM DAILY;
     Route: 065
  78. DILTIAZEM HYDROCHLORIDE [Suspect]
     Active Substance: DILTIAZEM HYDROCHLORIDE
     Dosage: 360 MILLIGRAM DAILY;
     Route: 065
  79. DILTIAZEM HYDROCHLORIDE [Suspect]
     Active Substance: DILTIAZEM HYDROCHLORIDE
     Dosage: 360 MILLIGRAM DAILY;
     Route: 065
  80. OXAZEPAM [Suspect]
     Active Substance: OXAZEPAM
     Indication: Product used for unknown indication
     Route: 065
  81. CARBAMAZEPINE [Suspect]
     Active Substance: CARBAMAZEPINE
     Indication: Seizure prophylaxis
     Dosage: 500 MILLIGRAM DAILY;
     Route: 065
  82. CARBAMAZEPINE [Suspect]
     Active Substance: CARBAMAZEPINE
     Indication: Seizure
     Dosage: 500 MILLIGRAM DAILY;
     Route: 065
  83. CARBAMAZEPINE [Suspect]
     Active Substance: CARBAMAZEPINE
     Indication: Fibromyalgia
     Dosage: 500 MILLIGRAM DAILY;
     Route: 065
  84. CYCLOBENZAPRINE HYDROCHLORIDE [Suspect]
     Active Substance: CYCLOBENZAPRINE HYDROCHLORIDE
     Indication: Pain
     Dosage: 1.87 MILLIGRAM DAILY;
     Route: 065
  85. CYCLOBENZAPRINE HYDROCHLORIDE [Suspect]
     Active Substance: CYCLOBENZAPRINE HYDROCHLORIDE
     Indication: Fibromyalgia
     Dosage: 1.87 MILLIGRAM DAILY;
     Route: 065
  86. DIPYRIDAMOLE [Suspect]
     Active Substance: DIPYRIDAMOLE
     Indication: Cerebrovascular accident
     Route: 065
  87. DIPYRIDAMOLE [Suspect]
     Active Substance: DIPYRIDAMOLE
     Route: 065
  88. DIPYRIDAMOLE [Suspect]
     Active Substance: DIPYRIDAMOLE
     Route: 065
  89. DULCOLAX NOS [Suspect]
     Active Substance: BISACODYL OR DOCUSATE SODIUM
     Indication: Constipation
     Route: 065
  90. GALANTAMINE HYDROBROMIDE [Suspect]
     Active Substance: GALANTAMINE HYDROBROMIDE
     Indication: Dementia
     Dosage: 16 MILLIGRAM DAILY;
     Route: 065
  91. GLUCOSAMINE [Suspect]
     Active Substance: GLUCOSAMINE
     Indication: Arthritis
     Dosage: 500 MILLIGRAM DAILY;
     Route: 065
  92. GLUCOSAMINE [Suspect]
     Active Substance: GLUCOSAMINE
     Indication: Pain
     Dosage: 500 MILLIGRAM DAILY;
     Route: 065
  93. NITROGLYCERIN [Suspect]
     Active Substance: NITROGLYCERIN
     Indication: Hypertension
     Dosage: .6 MILLIGRAM DAILY;
     Route: 065
  94. NITROGLYCERIN [Suspect]
     Active Substance: NITROGLYCERIN
     Indication: Coronary artery disease
     Dosage: .6 MILLIGRAM DAILY;
     Route: 065
  95. NITROGLYCERIN [Suspect]
     Active Substance: NITROGLYCERIN
     Indication: Chest pain
     Dosage: .6 MILLIGRAM DAILY;
     Route: 065
  96. NITROGLYCERIN [Suspect]
     Active Substance: NITROGLYCERIN
     Indication: Angina pectoris
     Dosage: .6 MILLIGRAM DAILY;
     Route: 065
  97. NITROGLYCERIN [Suspect]
     Active Substance: NITROGLYCERIN
     Dosage: .4 MILLIGRAM DAILY;
     Route: 065
  98. NITROGLYCERIN [Suspect]
     Active Substance: NITROGLYCERIN
     Dosage: .4 MILLIGRAM DAILY;
     Route: 065
  99. NITROGLYCERIN [Suspect]
     Active Substance: NITROGLYCERIN
     Dosage: .4 MILLIGRAM DAILY;
     Route: 065
  100. NITROGLYCERIN [Suspect]
     Active Substance: NITROGLYCERIN
     Dosage: .4 MILLIGRAM DAILY;
     Route: 065
  101. HYDROCHLOROTHIAZIDE\QUINAPRIL HYDROCHLORIDE [Suspect]
     Active Substance: HYDROCHLOROTHIAZIDE\QUINAPRIL HYDROCHLORIDE
     Indication: Hypertension
     Dosage: 40 MILLIGRAM DAILY;
     Route: 065
  102. HYDROCHLOROTHIAZIDE\QUINAPRIL HYDROCHLORIDE [Suspect]
     Active Substance: HYDROCHLOROTHIAZIDE\QUINAPRIL HYDROCHLORIDE
     Indication: Coronary artery disease
     Dosage: 40 MILLIGRAM DAILY;
     Route: 065
  103. HYDROCHLOROTHIAZIDE\QUINAPRIL HYDROCHLORIDE [Suspect]
     Active Substance: HYDROCHLOROTHIAZIDE\QUINAPRIL HYDROCHLORIDE
     Dosage: 20 MILLIGRAM DAILY;
     Route: 065
  104. HYDROCHLOROTHIAZIDE\QUINAPRIL HYDROCHLORIDE [Suspect]
     Active Substance: HYDROCHLOROTHIAZIDE\QUINAPRIL HYDROCHLORIDE
     Dosage: 20 MILLIGRAM DAILY;
     Route: 065
  105. LEVOFLOXACIN HEMIHYDRATE [Suspect]
     Active Substance: LEVOFLOXACIN
     Indication: Urinary tract infection
     Dosage: 200 MILLIGRAM DAILY;
     Route: 065
  106. LEVOTHYROXINE SODIUM [Suspect]
     Active Substance: LEVOTHYROXINE SODIUM
     Indication: Thyroid disorder
     Route: 065
  107. LEVOTHYROXINE SODIUM [Suspect]
     Active Substance: LEVOTHYROXINE SODIUM
     Indication: Radioactive iodine therapy
     Route: 065
  108. LEVOTHYROXINE SODIUM [Suspect]
     Active Substance: LEVOTHYROXINE SODIUM
     Dosage: .88 MILLIGRAM DAILY;
     Route: 048
  109. LEVOTHYROXINE SODIUM [Suspect]
     Active Substance: LEVOTHYROXINE SODIUM
     Dosage: .88 MILLIGRAM DAILY;
     Route: 048
  110. LEVOTHYROXINE SODIUM [Suspect]
     Active Substance: LEVOTHYROXINE SODIUM
     Dosage: .088 MILLIGRAM DAILY;
     Route: 048
  111. LEVOTHYROXINE SODIUM [Suspect]
     Active Substance: LEVOTHYROXINE SODIUM
     Dosage: .088 MILLIGRAM DAILY;
     Route: 048
  112. MORPHINE SULFATE [Suspect]
     Active Substance: MORPHINE SULFATE
     Indication: Chest pain
     Dosage: 10 MILLIGRAM DAILY;
     Route: 030
  113. MORPHINE SULFATE [Suspect]
     Active Substance: MORPHINE SULFATE
     Indication: Pain
     Dosage: 10 MILLIGRAM DAILY;
     Route: 030
  114. MORPHINE SULFATE [Suspect]
     Active Substance: MORPHINE SULFATE
     Indication: Fibromyalgia
     Dosage: 10 MILLIGRAM DAILY;
     Route: 030
  115. MORPHINE SULFATE [Suspect]
     Active Substance: MORPHINE SULFATE
     Dosage: 20 MILLIGRAM DAILY;
     Route: 030
  116. MORPHINE SULFATE [Suspect]
     Active Substance: MORPHINE SULFATE
     Dosage: 20 MILLIGRAM DAILY;
     Route: 030
  117. MORPHINE SULFATE [Suspect]
     Active Substance: MORPHINE SULFATE
     Dosage: 20 MILLIGRAM DAILY;
     Route: 030
  118. NITROGLYCERIN [Suspect]
     Active Substance: NITROGLYCERIN
     Indication: Coronary artery disease
     Route: 065
  119. NITROGLYCERIN [Suspect]
     Active Substance: NITROGLYCERIN
     Indication: Chest pain
     Route: 065
  120. NITROGLYCERIN [Suspect]
     Active Substance: NITROGLYCERIN
     Indication: Angina pectoris
     Route: 065
  121. NITROGLYCERIN [Suspect]
     Active Substance: NITROGLYCERIN
     Route: 065
  122. NITROGLYCERIN [Suspect]
     Active Substance: NITROGLYCERIN
     Route: 065
  123. NITROGLYCERIN [Suspect]
     Active Substance: NITROGLYCERIN
     Route: 065
  124. NITROGLYCERIN [Suspect]
     Active Substance: NITROGLYCERIN
     Dosage: .6 MILLIGRAM DAILY;
     Route: 061
  125. NITROGLYCERIN [Suspect]
     Active Substance: NITROGLYCERIN
     Dosage: .6 MILLIGRAM DAILY;
     Route: 061
  126. NITROGLYCERIN [Suspect]
     Active Substance: NITROGLYCERIN
     Dosage: .6 MILLIGRAM DAILY;
     Route: 061
  127. OXAZEPAM [Suspect]
     Active Substance: OXAZEPAM
     Indication: Hypertension
     Dosage: 40 MILLIGRAM DAILY;
     Route: 065
  128. OXAZEPAM [Suspect]
     Active Substance: OXAZEPAM
     Indication: Coronary artery disease
     Dosage: 40 MILLIGRAM DAILY;
     Route: 065
  129. OXAZEPAM [Suspect]
     Active Substance: OXAZEPAM
     Indication: Insomnia
     Dosage: 40 MILLIGRAM DAILY;
     Route: 065
  130. OXAZEPAM [Suspect]
     Active Substance: OXAZEPAM
     Dosage: 15 MILLIGRAM DAILY;
     Route: 065
  131. OXAZEPAM [Suspect]
     Active Substance: OXAZEPAM
     Dosage: 15 MILLIGRAM DAILY;
     Route: 065
  132. OXAZEPAM [Suspect]
     Active Substance: OXAZEPAM
     Dosage: 15 MILLIGRAM DAILY;
     Route: 065
  133. PERSANTINE [Suspect]
     Active Substance: DIPYRIDAMOLE
     Indication: Product used for unknown indication
     Route: 065
  134. QUINAPRIL HYDROCHLORIDE [Suspect]
     Active Substance: QUINAPRIL HYDROCHLORIDE
     Indication: Hypertension
     Dosage: 20 MILLIGRAM DAILY;
     Route: 065
  135. QUINAPRIL HYDROCHLORIDE [Suspect]
     Active Substance: QUINAPRIL HYDROCHLORIDE
     Indication: Coronary artery disease
     Dosage: 20 MILLIGRAM DAILY;
     Route: 065
  136. QUINAPRIL HYDROCHLORIDE [Suspect]
     Active Substance: QUINAPRIL HYDROCHLORIDE
     Indication: Chest pain
     Dosage: 20 MILLIGRAM DAILY;
     Route: 065
  137. QUINAPRIL HYDROCHLORIDE [Suspect]
     Active Substance: QUINAPRIL HYDROCHLORIDE
     Indication: Angina pectoris
     Dosage: 20 MILLIGRAM DAILY;
     Route: 065
  138. QUINAPRIL HYDROCHLORIDE [Suspect]
     Active Substance: QUINAPRIL HYDROCHLORIDE
     Dosage: 40 MILLIGRAM DAILY;
     Route: 065
  139. QUINAPRIL HYDROCHLORIDE [Suspect]
     Active Substance: QUINAPRIL HYDROCHLORIDE
     Dosage: 40 MILLIGRAM DAILY;
     Route: 065
  140. QUINAPRIL HYDROCHLORIDE [Suspect]
     Active Substance: QUINAPRIL HYDROCHLORIDE
     Dosage: 40 MILLIGRAM DAILY;
     Route: 065
  141. QUINAPRIL HYDROCHLORIDE [Suspect]
     Active Substance: QUINAPRIL HYDROCHLORIDE
     Dosage: 40 MILLIGRAM DAILY;
     Route: 065
  142. SPIRIVA [Suspect]
     Active Substance: TIOTROPIUM BROMIDE MONOHYDRATE
     Indication: Chronic obstructive pulmonary disease
     Route: 065
  143. ASPIRIN [Concomitant]
     Active Substance: ASPIRIN
     Indication: Product used for unknown indication
     Route: 065
  144. ACETYLSALICYLIC ACID/SODIUM BICARBONATE [Concomitant]
     Indication: Product used for unknown indication
     Route: 065
  145. ASPIRIN\DIPYRIDAMOLE [Concomitant]
     Active Substance: ASPIRIN\DIPYRIDAMOLE
     Indication: Product used for unknown indication
     Route: 065
  146. ACETAMINOPHEN [Concomitant]
     Active Substance: ACETAMINOPHEN
     Indication: Product used for unknown indication
     Route: 065
  147. ASCORBIC ACID\CRANBERRY [Concomitant]
     Active Substance: ASCORBIC ACID\CRANBERRY
     Indication: Product used for unknown indication
     Route: 065
  148. CRANBERRY [Concomitant]
     Active Substance: CRANBERRY
     Indication: Product used for unknown indication
     Route: 065
  149. FIBRE SOLUBLE/GLYCEROL/PHOSPHORIC ACID/POTASSIUM SORBATE/SODIUM BENZOA [Concomitant]
     Indication: Product used for unknown indication
     Route: 065
  150. FRUCTOSE\GLYCERIN\SODIUM CHLORIDE [Concomitant]
     Active Substance: FRUCTOSE\GLYCERIN\SODIUM CHLORIDE
     Indication: Product used for unknown indication
     Route: 065
  151. HERBALS\PLANTAGO OVATA LEAF [Concomitant]
     Active Substance: HERBALS\PLANTAGO OVATA LEAF
     Indication: Product used for unknown indication
     Route: 065
  152. CRANBERRY [Concomitant]
     Active Substance: CRANBERRY
     Indication: Product used for unknown indication
     Route: 065
  153. VACCINIUM MACROCARPON/ZINC [Concomitant]
     Indication: Product used for unknown indication
     Route: 065
  154. VITAMIN C [Concomitant]
     Active Substance: ASCORBIC ACID
     Indication: Product used for unknown indication
     Route: 065
  155. ZINC [Concomitant]
     Active Substance: ZINC
     Indication: Product used for unknown indication
     Route: 065
  156. PAPAVERINE [Suspect]
     Active Substance: PAPAVERINE
  157. PHENOBARBITAL [Suspect]
     Active Substance: PHENOBARBITAL

REACTIONS (14)
  - Balance disorder [Recovered/Resolved]
  - Cognitive disorder [Recovered/Resolved]
  - Constipation [Recovered/Resolved]
  - Depressed level of consciousness [Recovered/Resolved]
  - Fall [Recovered/Resolved]
  - Hypotension [Recovered/Resolved]
  - Mobility decreased [Recovered/Resolved]
  - Orthostatic hypotension [Recovered/Resolved]
  - Pain [Recovered/Resolved]
  - Sedation [Recovered/Resolved]
  - Sedation complication [Recovered/Resolved]
  - Toxicity to various agents [Recovered/Resolved]
  - Blood calcium decreased [Recovered/Resolved]
  - Creatinine renal clearance decreased [Recovered/Resolved]
